FAERS Safety Report 8447307-9 (Version None)
Quarter: 2012Q2

REPORT INFORMATION
  Report Type: 
  Country: None (occurrence: None)
  Receive Date: 20120619
  Receipt Date: 20120612
  Transmission Date: 20120825
  Serious: Yes (Hospitalization)
  Sender: FDA-Public Use
  Company Number: PHHY2012FR051740

PATIENT
  Age: 58 Year
  Sex: Male

DRUGS (4)
  1. REMICADE [Suspect]
     Dosage: 1 INFUSION EVERY 6 WEEKS
     Route: 042
     Dates: start: 20010101
  2. ZOLEDRONOC ACID [Suspect]
     Route: 042
     Dates: start: 20080101
  3. AREDIA [Suspect]
     Dosage: 1 INFUSION EVERY 3 MONTHS
     Route: 042
     Dates: end: 20080101
  4. METHOTREXATE [Suspect]
     Route: 048
     Dates: start: 20010101

REACTIONS (2)
  - NERVOUS SYSTEM DISORDER [None]
  - BRAIN NEOPLASM [None]
